FAERS Safety Report 16172866 (Version 2)
Quarter: 2019Q2

REPORT INFORMATION
  Report Type: Spontaneous
  Country: DE (occurrence: DE)
  Receive Date: 20190409
  Receipt Date: 20190523
  Transmission Date: 20190711
  Serious: Yes (Other)
  Sender: FDA-Public Use
  Company Number: DE-ROCHE-2299901

PATIENT
  Sex: Female

DRUGS (2)
  1. XOLAIR [Suspect]
     Active Substance: OMALIZUMAB
     Indication: CHRONIC SPONTANEOUS URTICARIA
     Dosage: 600 MG, ((150 MG X 4), EVERY 4 WEEKS)
     Route: 065
     Dates: start: 2017
  2. XOLAIR [Suspect]
     Active Substance: OMALIZUMAB
     Indication: ASTHMA
     Route: 065
     Dates: start: 201904

REACTIONS (7)
  - Chills [Unknown]
  - Diarrhoea [Unknown]
  - Dyspnoea [Unknown]
  - Drug ineffective [Unknown]
  - Pharyngeal swelling [Unknown]
  - Feeling abnormal [Unknown]
  - Gastrointestinal disorder [Unknown]
